FAERS Safety Report 8779526 (Version 1)
Quarter: 2012Q4

REPORT INFORMATION
  Report Type: 
  Country: US (occurrence: US)
  Receive Date: 20120912
  Receipt Date: 20120912
  Transmission Date: 20130627
  Serious: Yes (Death)
  Sender: FDA-Public Use
  Company Number: US-INCYTE CORPORATION-2012IN001726

PATIENT
  Age: 72 Year
  Sex: Female

DRUGS (6)
  1. JAKAFI [Suspect]
     Indication: BONE MARROW DISORDER
     Dosage: 20 mg, bid
     Route: 048
  2. ANTIHYPERTENSIVES [Concomitant]
  3. DIURETICS [Concomitant]
  4. ASPIRIN [Concomitant]
     Dosage: UNK, qd
  5. VITAMIN C [Concomitant]
  6. CORTICOSTEROIDS/STEROIDS [Concomitant]

REACTIONS (1)
  - Chronic obstructive pulmonary disease [Fatal]
